FAERS Safety Report 9518632 (Version 1)
Quarter: 2013Q3

REPORT INFORMATION
  Report Type: Spontaneous
  Country: US (occurrence: None)
  Receive Date: 20130910
  Receipt Date: 20130910
  Transmission Date: 20140515
  Serious: Yes (Hospitalization)
  Sender: FDA-Public Use
  Company Number: IMP_06816_2013

PATIENT
  Age: 28 Year
  Sex: Male

DRUGS (3)
  1. CLONIDINE [Suspect]
     Indication: PRODUCT USED FOR UNKNOWN INDICATION
     Dosage: DF [MULTIPLE PILLS, NOT PRESCRIBED DOSE]
  2. CLONAZEPAM [Suspect]
     Indication: PRODUCT USED FOR UNKNOWN INDICATION
     Dosage: [MULTIPLE PILLS, NOT PRESCRIBED DOSE])
  3. QUETIAPINE [Concomitant]

REACTIONS (12)
  - Suicide attempt [None]
  - Intentional overdose [None]
  - Drug abuse [None]
  - Stress [None]
  - Depression [None]
  - Sinus bradycardia [None]
  - Respiratory acidosis [None]
  - Hypercapnia [None]
  - Drug screen positive [None]
  - Suicidal ideation [None]
  - Agitation [None]
  - Withdrawal hypertension [None]
